FAERS Safety Report 8482134-8 (Version None)
Quarter: 2012Q3

REPORT INFORMATION
  Report Type: 
  Country: None (occurrence: None)
  Receive Date: 20120702
  Receipt Date: 20120627
  Transmission Date: 20120928
  Serious: Yes (Death, Life-Threatening, Hospitalization)
  Sender: FDA-Public Use
  Company Number: DE-PFIZER INC-2012129462

PATIENT
  Age: 66 Year
  Sex: Male
  Weight: 80 kg

DRUGS (7)
  1. NOREPINEPHRINE [Concomitant]
  2. LORAZEPAM [Concomitant]
     Dosage: 2 MG, AS NEEDED
     Route: 042
  3. POTASSIUM [Concomitant]
  4. VORICONAZOLE [Suspect]
     Indication: ASPERGILLOSIS
     Dosage: 200 MG, 2X/DAY
     Route: 042
     Dates: start: 20120523, end: 20120528
  5. MOTILIUM [Concomitant]
     Dosage: 40 GTT, UNK
  6. DOPAMINE [Concomitant]
  7. RANITIDIN ^ALIUD PHARMA^ [Concomitant]
     Dosage: 50 MG, UNK

REACTIONS (6)
  - TRANSAMINASES INCREASED [None]
  - ACUTE HEPATIC FAILURE [None]
  - LIVER FUNCTION TEST ABNORMAL [None]
  - RENAL FAILURE ACUTE [None]
  - METABOLIC ACIDOSIS [None]
  - HAEMORRHAGIC DIATHESIS [None]
